FAERS Safety Report 4961940-8 (Version None)
Quarter: 2006Q1

REPORT INFORMATION
  Report Type: 
  Country: None (occurrence: None)
  Receive Date: 20060329
  Receipt Date: 20060316
  Transmission Date: 20060701
  Serious: Yes (Other)
  Sender: FDA-Public Use
  Company Number: USA-2006-0023731

PATIENT
  Age: 38 Year
  Sex: Male

DRUGS (3)
  1. OXYCONTIN [Suspect]
     Indication: SHOULDER PAIN
     Dosage: 80 MG, QID
     Dates: start: 19990101, end: 20050701
  2. XANAX [Concomitant]
  3. FIORICET [Concomitant]

REACTIONS (11)
  - AGITATION [None]
  - ANOREXIA [None]
  - CONSTIPATION [None]
  - DRUG DEPENDENCE [None]
  - DRUG TOXICITY [None]
  - GENERAL PHYSICAL HEALTH DETERIORATION [None]
  - HEADACHE [None]
  - IMPAIRED HEALING [None]
  - INSOMNIA [None]
  - PRE-EXISTING CONDITION IMPROVED [None]
  - RESPIRATORY DEPRESSION [None]
